FAERS Safety Report 16510923 (Version 1)
Quarter: 2019Q3

REPORT INFORMATION
  Report Type: Spontaneous
  Country: US (occurrence: US)
  Receive Date: 20190702
  Receipt Date: 20190702
  Transmission Date: 20191004
  Serious: No
  Sender: FDA-Public Use
  Company Number: US-ACCORD-102804

PATIENT
  Age: 71 Year
  Sex: Female

DRUGS (1)
  1. MYCOPHENOLIC ACID. [Suspect]
     Active Substance: MYCOPHENOLIC ACID
     Indication: IMMUNE SYSTEM DISORDER
     Dosage: 2 TABLETS
     Route: 048
     Dates: start: 201812

REACTIONS (1)
  - Condition aggravated [Not Recovered/Not Resolved]
